FAERS Safety Report 6765681-6 (Version None)
Quarter: 2010Q2

REPORT INFORMATION
  Report Type: 
  Country: None (occurrence: None)
  Receive Date: 20100611
  Receipt Date: 20100528
  Transmission Date: 20101027
  Serious: Yes (Hospitalization)
  Sender: FDA-Public Use
  Company Number: US-ELI_LILLY_AND_COMPANY-US201006001117

PATIENT
  Sex: Female

DRUGS (4)
  1. FORTEO [Suspect]
     Indication: OSTEOPOROSIS
     Dosage: 20 MG, DAILY (1/D)
     Dates: start: 20090201
  2. AVAPRO [Concomitant]
     Dosage: 300 MG, DAILY (1/D)
  3. METOPROLOL TARTRATE [Concomitant]
     Dosage: 100 MG, 2/D
  4. RAMIPRIL [Concomitant]
     Dosage: 10 MG, 2/D

REACTIONS (4)
  - BLOOD PRESSURE INCREASED [None]
  - SKIN DISORDER [None]
  - SPINAL DISORDER [None]
  - VISUAL IMPAIRMENT [None]
